FAERS Safety Report 17017024 (Version 5)
Quarter: 2025Q2

REPORT INFORMATION
  Report Type: Report from Study
  Country: US (occurrence: US)
  Receive Date: 20191111
  Receipt Date: 20250418
  Transmission Date: 20250717
  Serious: Yes (Life-Threatening, Hospitalization, Other)
  Sender: TAKEDA
  Company Number: US-SHIRE-US201937871

PATIENT
  Sex: Female

DRUGS (5)
  1. PARATHYROID HORMONE [Suspect]
     Active Substance: PARATHYROID HORMONE
     Indication: Hypoparathyroidism
     Dosage: 100 MICROGRAM, QD
     Dates: start: 20170815
  2. PARATHYROID HORMONE [Suspect]
     Active Substance: PARATHYROID HORMONE
     Indication: Hypocalcaemia
     Dosage: UNK UNK, QD
  3. PARATHYROID HORMONE [Suspect]
     Active Substance: PARATHYROID HORMONE
  4. CALCIUM [Concomitant]
     Active Substance: CALCIUM
     Indication: Hypocalcaemia
  5. VITAMIN D [Concomitant]
     Active Substance: VITAMIN D NOS
     Indication: Hypocalcaemia

REACTIONS (3)
  - Hypocalcaemia [Unknown]
  - Hernia [Not Recovered/Not Resolved]
  - Recalled product [Unknown]
